FAERS Safety Report 26037147 (Version 2)
Quarter: 2025Q4

REPORT INFORMATION
  Report Type: Other
  Country: US (occurrence: US)
  Receive Date: 20251112
  Receipt Date: 20251117
  Transmission Date: 20260117
  Serious: Yes (Hospitalization, Other)
  Sender: NOVA LABORATORIES LIMITED
  Company Number: US-Nova Laboratories Limited-2188414

PATIENT
  Age: 65 Year
  Sex: Male

DRUGS (2)
  1. XROMI [Suspect]
     Active Substance: HYDROXYUREA
     Indication: Myelofibrosis
  2. RUXOLITINIB [Suspect]
     Active Substance: RUXOLITINIB

REACTIONS (2)
  - Hypersensitivity [Recovered/Resolved]
  - Off label use [Unknown]
